FAERS Safety Report 4773951-6 (Version None)
Quarter: 2005Q3

REPORT INFORMATION
  Report Type: 
  Country: None (occurrence: None)
  Receive Date: 20050920
  Receipt Date: 20050817
  Transmission Date: 20060218
  Serious: Yes (Life-Threatening)
  Sender: FDA-Public Use
  Company Number: 200512377JP

PATIENT
  Age: 61 Year
  Sex: Female
  Weight: 46 kg

DRUGS (4)
  1. ALLEGRA [Suspect]
     Indication: URTICARIA
     Route: 048
     Dates: start: 20050802, end: 20050806
  2. CHLOCODEMIN [Suspect]
     Indication: URTICARIA
     Route: 048
     Dates: start: 20050802, end: 20050806
  3. CELESTAMINE TAB [Concomitant]
  4. CYANOCOBALAMIN [Concomitant]

REACTIONS (10)
  - CATHETER SITE HAEMORRHAGE [None]
  - COMPLEMENT FACTOR ABNORMAL [None]
  - INFECTION [None]
  - LEUKAEMIA [None]
  - NEUTROPHIL COUNT DECREASED [None]
  - PLATELET COUNT DECREASED [None]
  - PYREXIA [None]
  - THROMBOCYTOPENIA [None]
  - VIRAL INFECTION [None]
  - WHITE BLOOD CELL COUNT DECREASED [None]
